FAERS Safety Report 9645404 (Version 2)
Quarter: 2013Q4

REPORT INFORMATION
  Report Type: Spontaneous
  Country: US (occurrence: US)
  Receive Date: 20131025
  Receipt Date: 20131025
  Transmission Date: 20140711
  Serious: Yes (Other)
  Sender: FDA-Public Use
  Company Number: US-UCBSA-085921

PATIENT
  Age: 30 Year
  Sex: Male
  Weight: 65.77 kg

DRUGS (10)
  1. CIMZIA [Suspect]
     Indication: CROHN^S DISEASE
     Dosage: 400 MG EVERY 4 WEEKS, NO OF DOSES: APPROX 50;
     Route: 058
     Dates: start: 20080626
  2. CIMZIA [Suspect]
     Indication: CROHN^S DISEASE
  3. CIMZIA [Suspect]
     Indication: CROHN^S DISEASE
  4. DIAZEPAM [Concomitant]
     Dosage: 5MG AS NEEDED
  5. HYDROCORTISON [Concomitant]
     Dosage: UNSPECIFIED DOSE
  6. NIFEDIPINE 0.3% OINTMENT [Concomitant]
     Indication: MUSCLE RELAXANT THERAPY
     Dosage: STRENGHT:0.3%, 1 APPLICATION
     Route: 061
     Dates: start: 20110803
  7. WELCHOL [Concomitant]
     Indication: BILE ACID MALABSORPTION
     Dosage: 625 MG X 2
     Route: 048
     Dates: start: 20110908
  8. PEPTO BISMOL [Concomitant]
     Indication: ANTACID THERAPY
     Route: 048
     Dates: start: 20120703
  9. PEPTO BISMOL [Concomitant]
     Indication: ANTIDIARRHOEAL SUPPORTIVE CARE
     Route: 048
     Dates: start: 20120703
  10. PREDNISONE [Concomitant]
     Indication: CROHN^S DISEASE
     Dates: start: 20130711

REACTIONS (5)
  - Crohn^s disease [Not Recovered/Not Resolved]
  - Haematochezia [Unknown]
  - Stress [Not Recovered/Not Resolved]
  - Anxiety [Unknown]
  - Muscle strain [Unknown]
